FAERS Safety Report 7610603-9 (Version None)
Quarter: 2011Q3

REPORT INFORMATION
  Report Type: 
  Country: None (occurrence: None)
  Receive Date: 20110707
  Receipt Date: 20110630
  Transmission Date: 20111222
  Serious: Yes (Hospitalization, Other)
  Sender: FDA-Public Use
  Company Number: GER/UKI/10/0016081

PATIENT
  Age: 58 Year
  Sex: Male
  Weight: 80 kg

DRUGS (5)
  1. PERINDOPRIL ERBUMINE [Concomitant]
  2. LAMOTRIGINE [Concomitant]
  3. SIMVASTATIN [Concomitant]
  4. FLUOXETINE HYDROCHLORIDE [Suspect]
     Indication: DEPRESSION
     Dosage: 20 MG, 1 IN 1 D, ORAL
     Route: 048
     Dates: start: 20100801, end: 20100914
  5. ATENOLOL [Concomitant]

REACTIONS (6)
  - HYPOTENSION [None]
  - ACUTE GENERALISED EXANTHEMATOUS PUSTULOSIS [None]
  - BLOOD ALKALINE PHOSPHATASE DECREASED [None]
  - DYSPNOEA [None]
  - RENAL FAILURE ACUTE [None]
  - ERYTHEMA MULTIFORME [None]
